FAERS Safety Report 7193713-2 (Version None)
Quarter: 2010Q4

REPORT INFORMATION
  Report Type: 
  Country: None (occurrence: None)
  Receive Date: 20101223
  Receipt Date: 20101222
  Transmission Date: 20110411
  Serious: Yes (Life-Threatening, Hospitalization)
  Sender: FDA-Public Use
  Company Number: CO-B.I. PHARMACEUTICALS,INC./RIDGEFIELD-2010-RA-00358RA

PATIENT
  Sex: Male
  Weight: 65 kg

DRUGS (7)
  1. DABIGATRAN ETEXILATE [Suspect]
     Indication: ATRIAL FIBRILLATION
     Dosage: 220 MG
     Route: 048
     Dates: start: 20100901
  2. ENALAPRIL MALEATE [Concomitant]
     Indication: ISCHAEMIC CARDIOMYOPATHY
     Dosage: 40 MG
     Route: 048
     Dates: start: 20100701
  3. BISOPROLOL [Concomitant]
     Indication: ISCHAEMIC CARDIOMYOPATHY
     Dosage: 10 MG
     Route: 048
     Dates: start: 20100701
  4. ESPIRONOLACTONE [Concomitant]
     Indication: ISCHAEMIC CARDIOMYOPATHY
     Dosage: 25 MG
     Route: 048
     Dates: start: 20100701
  5. FUROSEMIDE [Concomitant]
     Indication: ISCHAEMIC CARDIOMYOPATHY
     Dosage: 40 MG
     Route: 048
     Dates: start: 20100701
  6. ATORVASTATIN [Concomitant]
     Indication: ISCHAEMIC CARDIOMYOPATHY
     Dosage: 20 MG
     Route: 048
     Dates: start: 20100701
  7. AMLODIPINE [Concomitant]
     Indication: ISCHAEMIC CARDIOMYOPATHY
     Dosage: 5 MG
     Route: 048
     Dates: start: 20100701

REACTIONS (1)
  - PULMONARY EMBOLISM [None]
